FAERS Safety Report 4570035-7 (Version None)
Quarter: 2005Q1

REPORT INFORMATION
  Report Type: 
  Country: None (occurrence: None)
  Receive Date: 20050204
  Receipt Date: 20050125
  Transmission Date: 20050727
  Serious: Yes (Life-Threatening, Hospitalization, Disabling, Other)
  Sender: FDA-Public Use
  Company Number: US-ABBOTT-05P-163-0288374-00

PATIENT
  Sex: Female
  Weight: 44.038 kg

DRUGS (6)
  1. VICODIN [Suspect]
     Indication: BACK PAIN
     Route: 048
     Dates: start: 20041015
  2. OXYTROL [Suspect]
     Indication: HYPERTONIC BLADDER
     Route: 062
     Dates: start: 20041028, end: 20041222
  3. METOPROLOL [Concomitant]
     Indication: HYPERTENSION
     Route: 048
     Dates: start: 20041003
  4. LEXAPRO [Concomitant]
     Indication: DEPRESSION
     Route: 048
     Dates: start: 20030101
  5. TOCOPHEROL CONCENTRATE CAP [Concomitant]
     Indication: VITAMIN SUPPLEMENTATION
     Route: 048
     Dates: start: 20041014
  6. B-KOMPLEX ^LECIVA^ [Concomitant]
     Indication: VITAMIN SUPPLEMENTATION
     Route: 048
     Dates: start: 20041014

REACTIONS (4)
  - FALL [None]
  - HEAD INJURY [None]
  - NAUSEA [None]
  - SUBDURAL HAEMATOMA [None]
